FAERS Safety Report 14034048 (Version 1)
Quarter: 2017Q4

REPORT INFORMATION
  Report Type: Spontaneous
  Country: US (occurrence: US)
  Receive Date: 20171003
  Receipt Date: 20171003
  Transmission Date: 20180321
  Serious: Yes (Other)
  Sender: FDA-Public Use
  Company Number: None

PATIENT
  Age: 62 Year
  Sex: Male
  Weight: 83.25 kg

DRUGS (3)
  1. XIAFLEX [Suspect]
     Active Substance: COLLAGENASE CLOSTRIDIUM HISTOLYTICUM
     Indication: DUPUYTREN^S CONTRACTURE
     Dosage: OTHER ROUTE:INJECTED IN HAND?
     Dates: start: 20170925, end: 20170926
  2. IBUPROFIN [Concomitant]
     Active Substance: IBUPROFEN
  3. FAMOTIDINE. [Concomitant]
     Active Substance: FAMOTIDINE

REACTIONS (2)
  - Discomfort [None]
  - Lymphadenopathy [None]

NARRATIVE: CASE EVENT DATE: 20170926
